FAERS Safety Report 6239560-7 (Version None)
Quarter: 2009Q2

REPORT INFORMATION
  Report Type: 
  Country: None (occurrence: None)
  Receive Date: 20090622
  Receipt Date: 20090617
  Transmission Date: 20091009
  Serious: Yes (Other)
  Sender: FDA-Public Use
  Company Number: US-WYE-H08131809

PATIENT
  Sex: Female

DRUGS (3)
  1. PREMPRO [Suspect]
     Dosage: UNKNOWN
     Route: 048
     Dates: start: 19970801, end: 20000101
  2. PROVERA [Suspect]
     Dosage: UNKNOWN
     Route: 048
     Dates: start: 19830101, end: 19970801
  3. PREMARIN [Suspect]
     Dosage: UNKNOWN
     Route: 048
     Dates: start: 19830101, end: 19970801

REACTIONS (2)
  - BREAST CANCER METASTATIC [None]
  - MALIGNANT NEOPLASM PROGRESSION [None]
